FAERS Safety Report 6582291-4 (Version None)
Quarter: 2010Q1

REPORT INFORMATION
  Report Type: 
  Country: None (occurrence: None)
  Receive Date: 20100216
  Receipt Date: 20100205
  Transmission Date: 20100710
  Serious: Yes (Life-Threatening, Hospitalization)
  Sender: FDA-Public Use
  Company Number: FR-WYE-G05516610

PATIENT
  Age: 19 Year
  Sex: Female

DRUGS (1)
  1. TAZOCILLINE [Suspect]
     Dosage: ONE SINGLE DOSE (EXACT DOSE UNKNOWN)
     Route: 042
     Dates: start: 20090201, end: 20090201

REACTIONS (16)
  - APPLICATION SITE DRYNESS [None]
  - APPLICATION SITE OEDEMA [None]
  - APPLICATION SITE PAPULES [None]
  - APPLICATION SITE PRURITUS [None]
  - CHILLS [None]
  - CIRCULATORY COLLAPSE [None]
  - CONDITION AGGRAVATED [None]
  - CREPITATIONS [None]
  - DYSPNOEA [None]
  - FACE OEDEMA [None]
  - LUNG DISORDER [None]
  - MALAISE [None]
  - PYREXIA [None]
  - RASH [None]
  - TYPE IV HYPERSENSITIVITY REACTION [None]
  - VOMITING [None]
